FAERS Safety Report 13304187 (Version 1)
Quarter: 2017Q1

REPORT INFORMATION
  Report Type: Spontaneous
  Country: CA (occurrence: CA)
  Receive Date: 20170308
  Receipt Date: 20170308
  Transmission Date: 20170428
  Serious: Yes (Disabling)
  Sender: FDA-Public Use
  Company Number: CA-TEVA-746528ACC

PATIENT
  Age: 77 Year
  Sex: Male
  Weight: 59.02 kg

DRUGS (4)
  1. TERBINAFINE. [Suspect]
     Active Substance: TERBINAFINE
     Indication: FUNGAL INFECTION
     Dosage: 250 MILLIGRAM DAILY;
     Route: 048
  2. SPIRIVA [Concomitant]
     Active Substance: TIOTROPIUM BROMIDE MONOHYDRATE
  3. LOTRIDERM CREAM [Concomitant]
  4. ZOPICLONE [Concomitant]
     Active Substance: ZOPICLONE

REACTIONS (7)
  - Impulsive behaviour [Recovered/Resolved]
  - Lymphocyte count abnormal [Recovered/Resolved]
  - Mean cell volume abnormal [Recovered/Resolved]
  - Restlessness [Recovered/Resolved]
  - Agitation [Recovered/Resolved]
  - Red blood cell count abnormal [Recovered/Resolved]
  - Thinking abnormal [Recovered/Resolved]
